FAERS Safety Report 11052319 (Version 1)
Quarter: 2015Q2

REPORT INFORMATION
  Report Type: Spontaneous
  Country: US (occurrence: US)
  Receive Date: 20150421
  Receipt Date: 20150421
  Transmission Date: 20150821
  Serious: Yes (Other)
  Sender: FDA-Public Use
  Company Number: US-PFIZER INC-2015129700

PATIENT
  Age: 46 Year
  Sex: Male

DRUGS (6)
  1. LYRICA [Suspect]
     Active Substance: PREGABALIN
     Indication: RADICULITIS LUMBOSACRAL
     Dosage: 100 MG, 2X/DAY
     Route: 048
  2. MORPHINE SULFATE. [Concomitant]
     Active Substance: MORPHINE SULFATE
     Dosage: 30 MG, 2X/DAY
  3. SYNTHROID [Concomitant]
     Active Substance: LEVOTHYROXINE SODIUM
     Dosage: 100 ?G, DAILY
     Route: 048
  4. MORPHINE SULFATE. [Concomitant]
     Active Substance: MORPHINE SULFATE
     Dosage: 15 MG, 2X/DAY
  5. MORPHINE SULFATE ER [Concomitant]
     Active Substance: MORPHINE SULFATE
     Dosage: 30 MG, 2X/DAY
     Route: 048
  6. CYCLOBENZAPRINE [Concomitant]
     Active Substance: CYCLOBENZAPRINE
     Dosage: 10 MG, 2X/DAY
     Route: 048

REACTIONS (17)
  - Anxiety [Unknown]
  - Sleep disorder [Unknown]
  - Pain [Unknown]
  - Paraesthesia [Unknown]
  - Radicular pain [Recovered/Resolved]
  - Pseudomeningocele [Unknown]
  - Hypoaesthesia [Not Recovered/Not Resolved]
  - Stress [Unknown]
  - Back pain [Unknown]
  - Walking aid user [Unknown]
  - Condition aggravated [Unknown]
  - Pain in extremity [Unknown]
  - Headache [Recovered/Resolved]
  - Muscular weakness [Not Recovered/Not Resolved]
  - Dizziness [Unknown]
  - Incision site swelling [Unknown]
  - Depression [Unknown]
